FAERS Safety Report 7126971-0 (Version None)
Quarter: 2010Q4

REPORT INFORMATION
  Report Type: 
  Country: None (occurrence: None)
  Receive Date: 20101129
  Receipt Date: 20091212
  Transmission Date: 20110411
  Serious: Yes (Other)
  Sender: FDA-Public Use
  Company Number: US-PFIZER INC-2009309753

PATIENT
  Weight: 96.161 kg

DRUGS (2)
  1. VIAGRA [Suspect]
     Indication: ERECTILE DYSFUNCTION
     Dosage: 300 MG, UNK
     Route: 048
     Dates: start: 20091212
  2. LIPITOR [Concomitant]
     Indication: BLOOD PRESSURE
     Dosage: FREQUENCY: 2X/DAY,
     Route: 048

REACTIONS (2)
  - ERECTION INCREASED [None]
  - INCORRECT DOSE ADMINISTERED [None]
